FAERS Safety Report 9515463 (Version 1)
Quarter: 2013Q1

REPORT INFORMATION
  Report Type: Spontaneous
  Country: US (occurrence: None)
  Receive Date: 20130305
  Receipt Date: 20130305
  Transmission Date: 20140127
  Serious: Yes (Other)
  Sender: FDA-Public Use
  Company Number: 163-21880-12021288

PATIENT
  Age: 70 Year
  Sex: Female

DRUGS (2)
  1. REVLIMID [Suspect]
     Indication: PLASMA CELL MYELOMA
     Dosage: 10 MG, 1 IN 2 D, PO
     Route: 048
     Dates: start: 20120113
  2. THALOMID [Suspect]
     Indication: PLASMA CELL MYELOMA
     Dosage: 50 MG, 1 IN 2 D, PO
     Route: 048
     Dates: start: 20110622

REACTIONS (3)
  - Muscle spasms [None]
  - Muscle spasticity [None]
  - Neuropathy peripheral [None]
